FAERS Safety Report 19769965 (Version 3)
Quarter: 2022Q1

REPORT INFORMATION
  Report Type: Spontaneous
  Country: US (occurrence: US)
  Receive Date: 20210901
  Receipt Date: 20220202
  Transmission Date: 20220423
  Serious: Yes (Hospitalization)
  Sender: FDA-Public Use
  Company Number: US-SUN PHARMACEUTICAL INDUSTRIES LTD-2021R1-309494

PATIENT
  Sex: Male

DRUGS (1)
  1. TADALAFIL [Suspect]
     Active Substance: TADALAFIL
     Indication: Product used for unknown indication
     Dosage: 20 MILLIGRAM
     Route: 048

REACTIONS (4)
  - Arthralgia [Not Recovered/Not Resolved]
  - Pain [Unknown]
  - Back pain [Unknown]
  - Limb discomfort [Unknown]
